FAERS Safety Report 14572279 (Version 1)
Quarter: 2018Q1

REPORT INFORMATION
  Report Type: Spontaneous
  Country: DE (occurrence: DE)
  Receive Date: 20180226
  Receipt Date: 20180226
  Transmission Date: 20180509
  Serious: Yes (Hospitalization, Other)
  Sender: FDA-Public Use
  Company Number: DE-JNJFOC-20180233923

PATIENT
  Age: 81 Year
  Sex: Male

DRUGS (6)
  1. IBEROGAST [Suspect]
     Active Substance: HERBALS
     Indication: GASTRIC DISORDER
     Dosage: 20 DROPS IN THE EVENING
     Route: 048
     Dates: start: 20180217
  2. XARELTO [Suspect]
     Active Substance: RIVAROXABAN
     Indication: ATRIAL FIBRILLATION
     Route: 048
  3. IBEROGAST [Suspect]
     Active Substance: HERBALS
     Indication: NAUSEA
     Dosage: 20 DROPS IN THE EVENING
     Route: 048
     Dates: start: 20180217
  4. BRONCHICUM THYMIAN [Suspect]
     Active Substance: HERBALS
     Indication: GASTRIC DISORDER
     Dosage: 1 SPOON
     Route: 048
     Dates: start: 20180217
  5. XARELTO [Suspect]
     Active Substance: RIVAROXABAN
     Indication: ATRIAL FIBRILLATION
     Route: 048
  6. BRONCHICUM THYMIAN [Suspect]
     Active Substance: HERBALS
     Indication: NAUSEA
     Dosage: 1 SPOON
     Route: 048
     Dates: start: 20180217

REACTIONS (6)
  - Diarrhoea [Unknown]
  - Cystitis [Unknown]
  - Blood urine present [Unknown]
  - Cerebrovascular accident [Unknown]
  - Gingival bleeding [Unknown]
  - Haematochezia [Unknown]

NARRATIVE: CASE EVENT DATE: 201801
